FAERS Safety Report 8033985-5 (Version None)
Quarter: 2012Q1

REPORT INFORMATION
  Report Type: 
  Country: None (occurrence: None)
  Receive Date: 20120110
  Receipt Date: 20120103
  Transmission Date: 20120608
  Serious: Yes (Hospitalization, Disabling)
  Sender: FDA-Public Use
  Company Number: US-MERCK-1106USA01825

PATIENT
  Age: 83 Year
  Sex: Female
  Weight: 66 kg

DRUGS (1)
  1. FOSAMAX [Suspect]
     Route: 048
     Dates: start: 20060815, end: 20090831

REACTIONS (19)
  - HYPOXIA [None]
  - TENDONITIS [None]
  - MUSCULOSKELETAL PAIN [None]
  - COUGH [None]
  - TRICUSPID VALVE INCOMPETENCE [None]
  - PYREXIA [None]
  - DERMATITIS ALLERGIC [None]
  - AORTIC STENOSIS [None]
  - BURSITIS [None]
  - VERTIGO POSITIONAL [None]
  - DRUG INEFFECTIVE [None]
  - AORTIC VALVE INCOMPETENCE [None]
  - GASTROOESOPHAGEAL REFLUX DISEASE [None]
  - NASOPHARYNGITIS [None]
  - TACHYCARDIA [None]
  - LEFT VENTRICULAR HYPERTROPHY [None]
  - FALL [None]
  - ARTHRITIS [None]
  - FEMUR FRACTURE [None]
